APPROVED DRUG PRODUCT: SPIRONOLACTONE
Active Ingredient: SPIRONOLACTONE
Strength: 25MG
Dosage Form/Route: TABLET;ORAL
Application: A040353 | Product #003
Applicant: ACTAVIS ELIZABETH LLC
Approved: Mar 15, 2006 | RLD: No | RS: No | Type: DISCN